FAERS Safety Report 4578988-8 (Version None)
Quarter: 2005Q1

REPORT INFORMATION
  Report Type: 
  Country: None (occurrence: None)
  Receive Date: 20050118
  Receipt Date: 20040512
  Transmission Date: 20050727
  Serious: No
  Sender: FDA-Public Use
  Company Number: 367642

PATIENT
  Age: 2 Year

DRUGS (1)
  1. ROCEPHIN [Suspect]
     Indication: DRUG USE FOR UNKNOWN INDICATION

REACTIONS (1)
  - HAEMOLYTIC ANAEMIA [None]
